FAERS Safety Report 6370370-6 (Version None)
Quarter: 2009Q3

REPORT INFORMATION
  Report Type: 
  Country: None (occurrence: None)
  Receive Date: 20090923
  Receipt Date: 20090805
  Transmission Date: 20100115
  Serious: No
  Sender: FDA-Public Use
  Company Number: US-BAYER-200929518NA

PATIENT
  Age: 35 Year
  Sex: Female
  Weight: 52 kg

DRUGS (5)
  1. MIRENA [Suspect]
     Indication: CONTRACEPTION
     Dosage: CONTINUOUS DELIVERY
     Route: 015
     Dates: start: 20090701
  2. VYVANSE [Concomitant]
     Indication: ATTENTION DEFICIT/HYPERACTIVITY DISORDER
  3. WELLBUTRIN [Concomitant]
  4. KLONADINE [Concomitant]
     Dosage: UNIT DOSE: 0.3 MG
  5. XANAX [Concomitant]
     Dosage: A FEW TIMES A WEEK

REACTIONS (4)
  - ABDOMINAL PAIN [None]
  - MOOD SWINGS [None]
  - POST PROCEDURAL HAEMORRHAGE [None]
  - VAGINAL ODOUR [None]
